FAERS Safety Report 23638111 (Version 1)
Quarter: 2024Q1

REPORT INFORMATION
  Report Type: Spontaneous
  Country: GB (occurrence: GB)
  Receive Date: 20240315
  Receipt Date: 20240315
  Transmission Date: 20240409
  Serious: Yes (Hospitalization)
  Sender: FDA-Public Use
  Company Number: GB-ABBVIE-5680498

PATIENT
  Sex: Female

DRUGS (1)
  1. BOTOX [Suspect]
     Active Substance: ONABOTULINUMTOXINA
     Indication: Product used for unknown indication
     Dosage: TIME INTERVAL: AS NECESSARY
     Route: 065

REACTIONS (10)
  - Anaphylactic shock [Unknown]
  - Eye disorder [Unknown]
  - Myalgia [Unknown]
  - Injection site pain [Recovered/Resolved]
  - Swelling face [Not Recovered/Not Resolved]
  - Skin burning sensation [Unknown]
  - Condition aggravated [Unknown]
  - Discomfort [Unknown]
  - Hypersensitivity [Unknown]
  - Respiration abnormal [Unknown]
